FAERS Safety Report 12807186 (Version 4)
Quarter: 2016Q4

REPORT INFORMATION
  Report Type: Report from Study
  Country: US (occurrence: US)
  Receive Date: 20161004
  Receipt Date: 20161206
  Transmission Date: 20170207
  Serious: Yes (Death, Hospitalization, Other)
  Sender: FDA-Public Use
  Company Number: US-ALEXION PHARMACEUTICALS INC-A201607408

PATIENT
  Sex: Female

DRUGS (2)
  1. SOLIRIS [Suspect]
     Active Substance: ECULIZUMAB
     Indication: HAEMOLYTIC URAEMIC SYNDROME
     Dosage: UNK
     Route: 042
  2. NPLATE [Concomitant]
     Active Substance: ROMIPLOSTIM
     Indication: PRODUCT USED FOR UNKNOWN INDICATION
     Route: 065

REACTIONS (14)
  - Hypokinesia [Unknown]
  - Vomiting [Unknown]
  - Cardiac disorder [Unknown]
  - Heart rate increased [Unknown]
  - Platelet count abnormal [Unknown]
  - Pulmonary hypertension [Unknown]
  - Decubitus ulcer [Unknown]
  - Cerebrovascular accident [Fatal]
  - Eating disorder [Unknown]
  - Confusional state [Unknown]
  - Disorientation [Unknown]
  - Body temperature increased [Unknown]
  - General physical health deterioration [Unknown]
  - Dyspnoea [Unknown]
